FAERS Safety Report 5662920-X (Version None)
Quarter: 2008Q1

REPORT INFORMATION
  Report Type: 
  Country: None (occurrence: None)
  Receive Date: 20080313
  Receipt Date: 20080303
  Transmission Date: 20080703
  Serious: Yes (Hospitalization, Disabling)
  Sender: FDA-Public Use
  Company Number: US-MERCK-0609USA02541

PATIENT
  Age: 60 Year
  Sex: Female
  Weight: 77 kg

DRUGS (3)
  1. FOSAMAX [Suspect]
     Indication: OSTEOPOROSIS
     Route: 048
     Dates: start: 20020801, end: 20051101
  2. PREMARIN [Concomitant]
     Route: 048
  3. ZETIA [Concomitant]
     Indication: BLOOD CHOLESTEROL INCREASED
     Route: 048

REACTIONS (20)
  - ANXIETY [None]
  - APPENDICITIS [None]
  - BASAL CELL CARCINOMA [None]
  - BRONCHITIS [None]
  - CAROTID ARTERY STENOSIS [None]
  - CHRONIC OBSTRUCTIVE PULMONARY DISEASE [None]
  - CONTUSION [None]
  - DEPRESSION [None]
  - FALL [None]
  - HYPERTENSION [None]
  - HYPOGLYCAEMIA [None]
  - MUSCULOSKELETAL CHEST PAIN [None]
  - ORAL FIBROMA [None]
  - OSTEONECROSIS [None]
  - PNEUMONIA PRIMARY ATYPICAL [None]
  - ROTATOR CUFF SYNDROME [None]
  - SALIVARY GLAND MASS [None]
  - TENDON INJURY [None]
  - TYPE 2 DIABETES MELLITUS [None]
  - VOCAL CORD POLYP [None]
